FAERS Safety Report 4866083-X (Version None)
Quarter: 2005Q4

REPORT INFORMATION
  Report Type: 
  Country: None (occurrence: None)
  Receive Date: 20051227
  Receipt Date: 20051214
  Transmission Date: 20060501
  Serious: Yes (Other)
  Sender: FDA-Public Use
  Company Number: NL-BOEHRINGER INGELHEIM PHARMACEUTICALS, INC.-2005-BP-21715YA

PATIENT
  Age: 51 Year
  Sex: Male

DRUGS (1)
  1. OMNIC CAPSULES [Suspect]
     Indication: MICTURITION DISORDER
     Route: 048
     Dates: start: 20021101

REACTIONS (1)
  - ERECTILE DYSFUNCTION [None]
